FAERS Safety Report 5101499-8 (Version None)
Quarter: 2006Q3

REPORT INFORMATION
  Report Type: 
  Country: None (occurrence: None)
  Receive Date: 20060911
  Receipt Date: 20060901
  Transmission Date: 20061208
  Serious: Yes (Other)
  Sender: FDA-Public Use
  Company Number: 2006UW17328

PATIENT
  Age: 51 Year
  Sex: Female
  Weight: 70.8 kg

DRUGS (3)
  1. ARIMIDEX [Suspect]
     Indication: BREAST CANCER
     Route: 048
     Dates: start: 20000101, end: 20050101
  2. SYNTHROID [Concomitant]
  3. CLONIDINE [Concomitant]

REACTIONS (9)
  - ARTHRALGIA [None]
  - BLOOD PRESSURE ABNORMAL [None]
  - DIPLOPIA [None]
  - HEART RATE INCREASED [None]
  - HOT FLUSH [None]
  - INSOMNIA [None]
  - THYROID DISORDER [None]
  - THYROID FUNCTION TEST ABNORMAL [None]
  - VAGINAL HAEMORRHAGE [None]
